FAERS Safety Report 7690683-5 (Version None)
Quarter: 2011Q3

REPORT INFORMATION
  Report Type: 
  Country: None (occurrence: None)
  Receive Date: 20110818
  Receipt Date: 20110815
  Transmission Date: 20111222
  Serious: Yes (Hospitalization, Other)
  Sender: FDA-Public Use
  Company Number: PH-PFIZER INC-2011159549

PATIENT
  Age: 36 Year
  Sex: Female
  Weight: 62 kg

DRUGS (2)
  1. PROVERA [Suspect]
     Indication: MENSTRUATION IRREGULAR
  2. PROVERA [Suspect]
     Indication: OFF LABEL USE
     Dosage: 10 MG, 1X/DAY
     Route: 048
     Dates: start: 20110603

REACTIONS (3)
  - PALLOR [None]
  - DYSFUNCTIONAL UTERINE BLEEDING [None]
  - DIZZINESS [None]
